FAERS Safety Report 17549581 (Version 3)
Quarter: 2021Q3

REPORT INFORMATION
  Report Type: Spontaneous
  Country: US (occurrence: US)
  Receive Date: 20200317
  Receipt Date: 20210921
  Transmission Date: 20211014
  Serious: No
  Sender: FDA-Public Use
  Company Number: US-VERTEX PHARMACEUTICALS-2020-005108

PATIENT
  Sex: Female

DRUGS (1)
  1. TRIKAFTA [Suspect]
     Active Substance: ELEXACAFTOR\IVACAFTOR\TEZACAFTOR
     Indication: CYSTIC FIBROSIS
     Dosage: 2 TABLETS AM AND 1 TABLET PM
     Route: 048
     Dates: start: 20191126

REACTIONS (4)
  - Headache [Not Recovered/Not Resolved]
  - Sputum discoloured [Recovered/Resolved]
  - Cough [Recovered/Resolved]
  - Nausea [Not Recovered/Not Resolved]

NARRATIVE: CASE EVENT DATE: 2019
